FAERS Safety Report 6492054-6 (Version None)
Quarter: 2009Q4

REPORT INFORMATION
  Report Type: 
  Country: None (occurrence: None)
  Receive Date: 20091125
  Receipt Date: 20090615
  Transmission Date: 20100525
  Serious: Yes (Hospitalization)
  Sender: FDA-Public Use
  Company Number: 2009BH009438

PATIENT
  Age: 72 Year
  Sex: Female

DRUGS (14)
  1. DIANEAL [Suspect]
     Indication: PERITONEAL DIALYSIS
     Dosage: ; UNK ; IP
     Route: 033
     Dates: end: 20090101
  2. AMLODIPINE [Concomitant]
  3. ASPIRIN [Concomitant]
  4. COZAAR [Concomitant]
  5. VITAMINS [Concomitant]
  6. COLACE [Concomitant]
  7. GLIPIZIDE [Concomitant]
  8. METOPROLOL [Concomitant]
  9. NIFEREX [Concomitant]
  10. NOVOLOG [Concomitant]
  11. RENAGEL [Concomitant]
  12. TRAZODONE [Concomitant]
  13. COUMADIN [Concomitant]
  14. ZEMPLAR [Concomitant]

REACTIONS (3)
  - DEVICE RELATED INFECTION [None]
  - PERITONEAL DIALYSIS COMPLICATION [None]
  - PERITONITIS BACTERIAL [None]
